FAERS Safety Report 6597620-5 (Version None)
Quarter: 2010Q1

REPORT INFORMATION
  Report Type: 
  Country: None (occurrence: None)
  Receive Date: 20100219
  Receipt Date: 20100219
  Transmission Date: 20100710
  Serious: Yes (Other)
  Sender: FDA-Public Use
  Company Number: None

PATIENT
  Age: 59 Year
  Sex: Male
  Weight: 70 kg

DRUGS (2)
  1. PLAVIX [Suspect]
     Indication: LATENT TUBERCULOSIS
     Dosage: 75MG DAILY PO
     Route: 048
  2. RIFAMPIN [Suspect]
     Indication: TRANSIENT ISCHAEMIC ATTACK
     Dosage: 600MG DAILY PO
     Route: 048

REACTIONS (1)
  - PETECHIAE [None]
